FAERS Safety Report 14615817 (Version 3)
Quarter: 2018Q4

REPORT INFORMATION
  Report Type: Spontaneous
  Country: JP (occurrence: JP)
  Receive Date: 20180309
  Receipt Date: 20181108
  Transmission Date: 20190204
  Serious: Yes (Death, Hospitalization, Other)
  Sender: FDA-Public Use
  Company Number: JP-BRISTOL-MYERS SQUIBB COMPANY-BMS-2018-022463

PATIENT
  Age: 70 Year
  Sex: Male
  Weight: 47 kg

DRUGS (1)
  1. OPDIVO [Suspect]
     Active Substance: NIVOLUMAB
     Indication: NON-SMALL CELL LUNG CANCER
     Dosage: 139 MG, UNK
     Route: 041
     Dates: start: 20161026, end: 20161227

REACTIONS (3)
  - Malignant neoplasm progression [Fatal]
  - Hepatobiliary disease [Recovered/Resolved]
  - Prescribed underdose [Unknown]

NARRATIVE: CASE EVENT DATE: 20161026
